FAERS Safety Report 8826173 (Version 1)
Quarter: 2012Q4

REPORT INFORMATION
  Report Type: 
  Country: US (occurrence: US)
  Receive Date: 20121005
  Receipt Date: 20121005
  Transmission Date: 20130627
  Serious: Yes (Death, Hospitalization, Other)
  Sender: FDA-Public Use
  Company Number: US-ROCHE-1137057

PATIENT
  Sex: Male

DRUGS (11)
  1. RITUXAN [Suspect]
     Indication: B-CELL LYMPHOMA
     Route: 065
  2. PREDNISONE [Concomitant]
  3. CYCLOPHOSPHAMIDE [Concomitant]
  4. ADRIAMYCIN [Concomitant]
  5. VINCRISTINE [Concomitant]
  6. ETOPOSIDE [Concomitant]
  7. STEROID (NAME UNKNOWN) [Concomitant]
  8. CYTARABINE [Concomitant]
  9. CISPLATIN [Concomitant]
  10. KYTRIL [Concomitant]
     Route: 065
     Dates: start: 19990825
  11. TYLENOL [Concomitant]
     Route: 065
     Dates: start: 19990825

REACTIONS (13)
  - Death [Fatal]
  - Muscular weakness [Unknown]
  - Abdominal pain [Unknown]
  - Disease progression [Unknown]
  - Urinary tract infection [Unknown]
  - Pleural effusion [Unknown]
  - Atelectasis [Unknown]
  - Dyspnoea [Unknown]
  - Lymphadenopathy [Unknown]
  - Fatigue [Unknown]
  - Pyuria [Unknown]
  - Back pain [Unknown]
  - Chest pain [Unknown]
